FAERS Safety Report 5076771-0 (Version None)
Quarter: 2006Q3

REPORT INFORMATION
  Report Type: 
  Country: None (occurrence: None)
  Receive Date: 20060810
  Receipt Date: 20060801
  Transmission Date: 20061208
  Serious: Yes (Hospitalization)
  Sender: FDA-Public Use
  Company Number: US-KINGPHARMUSA00001-K200600996

PATIENT
  Age: 85 Year
  Sex: Female

DRUGS (6)
  1. ALTACE [Suspect]
     Indication: HYPERTENSION
     Dosage: 5 MG, QD
     Route: 048
     Dates: end: 20060625
  2. PHYSIOTENS ^GIULINI^ [Suspect]
     Indication: HYPERTENSION
     Dosage: 1 TABLET, QD
     Route: 048
     Dates: end: 20060625
  3. TRANDATE [Suspect]
     Indication: HYPERTENSION
     Dosage: 400 MG, QD
     Route: 048
  4. MODOPAR [Suspect]
     Indication: PARKINSON'S DISEASE
     Dosage: 125 MG, UNK
     Route: 048
  5. L-THYROXINE [Concomitant]
     Dosage: 5 U, UNK
     Route: 048
  6. LEXOMIL [Concomitant]
     Dosage: 6 MG, UNK
     Route: 048

REACTIONS (3)
  - CAROTID ARTERY STENOSIS [None]
  - FALL [None]
  - ORTHOSTATIC HYPOTENSION [None]
